FAERS Safety Report 4899931-8 (Version None)
Quarter: 2006Q1

REPORT INFORMATION
  Report Type: 
  Country: None (occurrence: None)
  Receive Date: 20060203
  Receipt Date: 20060125
  Transmission Date: 20060701
  Serious: Yes (Hospitalization, Other)
  Sender: FDA-Public Use
  Company Number: GB-JNJFOC-20050306151

PATIENT
  Sex: Male
  Weight: 55 kg

DRUGS (10)
  1. REMICADE [Suspect]
     Indication: RHEUMATOID ARTHRITIS
     Route: 042
  2. METHOTREXATE [Concomitant]
  3. CALCICHEW [Concomitant]
  4. DOXYCYCLINE [Concomitant]
  5. PREDNISOLONE [Concomitant]
  6. FOLIC ACID [Concomitant]
  7. LIQUIFILM TEARS [Concomitant]
  8. LIQUIFILM TEARS [Concomitant]
  9. SALBUTAMOL [Concomitant]
  10. DF118 [Concomitant]

REACTIONS (2)
  - ARTHRODESIS [None]
  - INFECTION [None]
